FAERS Safety Report 5372873-X (Version None)
Quarter: 2007Q2

REPORT INFORMATION
  Report Type: 
  Country: None (occurrence: None)
  Receive Date: 20070626
  Receipt Date: 20070612
  Transmission Date: 20071010
  Serious: Yes (Other)
  Sender: FDA-Public Use
  Company Number: 02100-JPN-07-0247

PATIENT
  Age: 81 Year
  Sex: Female

DRUGS (5)
  1. CILOSTAZOL [Suspect]
     Indication: CEREBRAL INFARCTION
     Dosage: 100 MG/200 MG,ORAL
     Route: 048
     Dates: start: 20070301, end: 20070401
  2. CILOSTAZOL [Suspect]
     Indication: CEREBRAL INFARCTION
     Dosage: 100 MG/200 MG,ORAL
     Route: 048
     Dates: start: 20070401, end: 20070416
  3. AMLODIPINE BESYLATE [Concomitant]
  4. ACYCLOVIR [Concomitant]
  5. AN EXTRACT FROM INFLAMMATORY RABBIT SKIN INOCULATED BY VACCINIA VIRUS [Concomitant]

REACTIONS (5)
  - ACCIDENTAL OVERDOSE [None]
  - ANAEMIA [None]
  - BLOOD CREATINE PHOSPHOKINASE INCREASED [None]
  - HERPES SIMPLEX [None]
  - MYALGIA [None]
